FAERS Safety Report 25433615 (Version 1)
Quarter: 2025Q2

REPORT INFORMATION
  Report Type: Spontaneous
  Country: US (occurrence: None)
  Receive Date: 20250612
  Receipt Date: 20250612
  Transmission Date: 20250717
  Serious: No
  Sender: FDA-CTU
  Company Number: None

PATIENT
  Age: 61 Year
  Sex: Male

DRUGS (10)
  1. DOVATO [Suspect]
     Active Substance: DOLUTEGRAVIR SODIUM\LAMIVUDINE
     Indication: HIV infection
     Dosage: OTHER QUANTITY : 50/300MG;?FREQUENCY : DAILY;?
     Route: 048
     Dates: start: 20250317, end: 20250610
  2. ATORVASTATIN [Concomitant]
     Active Substance: ATORVASTATIN
  3. BETHANECHOL [Concomitant]
     Active Substance: BETHANECHOL
  4. CARVEDILOL [Concomitant]
     Active Substance: CARVEDILOL
  5. Cinacale [Concomitant]
  6. GABAPENTIN [Concomitant]
     Active Substance: GABAPENTIN
  7. MYCOPHENOLIC ACID [Concomitant]
     Active Substance: MYCOPHENOLIC ACID
  8. PANTOPRAZOLE [Concomitant]
     Active Substance: PANTOPRAZOLE
  9. PREDNISONE [Concomitant]
     Active Substance: PREDNISONE
  10. SODIUM BICARBONATE [Concomitant]
     Active Substance: SODIUM BICARBONATE

REACTIONS (4)
  - Headache [None]
  - Fatigue [None]
  - Weight increased [None]
  - Product substitution issue [None]

NARRATIVE: CASE EVENT DATE: 20250317
